FAERS Safety Report 5425441-5 (Version None)
Quarter: 2007Q3

REPORT INFORMATION
  Report Type: 
  Country: None (occurrence: None)
  Receive Date: 20070731
  Receipt Date: 20070406
  Transmission Date: 20080115
  Serious: No
  Sender: FDA-Public Use
  Company Number: US200704001723

PATIENT
  Age: 60 Year
  Sex: Male
  Weight: 108.8 kg

DRUGS (3)
  1. BYETTA [Suspect]
     Indication: TYPE 2 DIABETES MELLITUS
     Dosage: 5 UG, SUBCTANEOUS, 10 UG, 2/D, SUBCUTANOUS
     Route: 058
     Dates: start: 20060101, end: 20060101
  2. BYETTA [Suspect]
     Indication: TYPE 2 DIABETES MELLITUS
     Dosage: 5 UG, SUBCTANEOUS, 10 UG, 2/D, SUBCUTANOUS
     Route: 058
     Dates: start: 20060101
  3. EXENATIDE 5MCG PEN, DIPOSABLE DEVICE (EXENATIDE PEN (5MCG)) PEN, DISPO [Concomitant]

REACTIONS (2)
  - HAIR GROWTH ABNORMAL [None]
  - WEIGHT DECREASED [None]
